FAERS Safety Report 6003146-X (Version None)
Quarter: 2008Q4

REPORT INFORMATION
  Report Type: 
  Country: None (occurrence: None)
  Receive Date: 20081216
  Receipt Date: 20081208
  Transmission Date: 20090506
  Serious: Yes (Hospitalization)
  Sender: FDA-Public Use
  Company Number: DE-JNJFOC-20081202386

PATIENT
  Age: 59 Year
  Sex: Male

DRUGS (4)
  1. TAVANIC [Suspect]
     Indication: C-REACTIVE PROTEIN INCREASED
     Route: 048
  2. MYCOPHENOLATE MOFETIL [Suspect]
     Indication: IMMUNOSUPPRESSION
     Route: 065
  3. NEORAL [Concomitant]
     Indication: IMMUNOSUPPRESSION
     Route: 065
  4. STEROIDS [Concomitant]
     Indication: IMMUNOSUPPRESSION
     Route: 065

REACTIONS (8)
  - ABDOMINAL PAIN [None]
  - BLOOD CREATININE INCREASED [None]
  - BLOOD UREA INCREASED [None]
  - COLITIS EROSIVE [None]
  - DIARRHOEA [None]
  - HYPOKALAEMIA [None]
  - NAUSEA [None]
  - NORMOCHROMIC NORMOCYTIC ANAEMIA [None]
